FAERS Safety Report 6829604-3 (Version None)
Quarter: 2010Q3

REPORT INFORMATION
  Report Type: 
  Country: None (occurrence: None)
  Receive Date: 20100709
  Receipt Date: 20070410
  Transmission Date: 20110219
  Serious: No
  Sender: FDA-Public Use
  Company Number: US-PFIZER INC-2007013070

PATIENT
  Sex: Female
  Weight: 67.13 kg

DRUGS (9)
  1. CHANTIX [Suspect]
     Indication: SMOKING CESSATION THERAPY
     Route: 048
     Dates: start: 20070131, end: 20070215
  2. CHANTIX [Suspect]
     Dates: start: 20070131
  3. ANASTROZOLE [Concomitant]
     Indication: BREAST CANCER
  4. TOPAMAX [Concomitant]
     Indication: TREMOR
  5. INDERAL [Concomitant]
  6. LOVASTATIN [Concomitant]
  7. ACETYLSALICYLIC ACID [Concomitant]
  8. CENTRUM SILVER [Concomitant]
  9. CILOSTAZOL [Concomitant]
     Indication: ANGIOPLASTY

REACTIONS (4)
  - ABDOMINAL PAIN UPPER [None]
  - NAUSEA [None]
  - RETCHING [None]
  - VOMITING [None]
